FAERS Safety Report 9730262 (Version 1)
Quarter: 2013Q4

REPORT INFORMATION
  Report Type: Report from Study
  Country: BR (occurrence: BR)
  Receive Date: 20131202
  Receipt Date: 20131202
  Transmission Date: 20140711
  Serious: Yes (Death, Other)
  Sender: FDA-Public Use
  Company Number: PHHY2013BR138912

PATIENT
  Sex: Male
  Weight: 96 kg

DRUGS (1)
  1. RASILEZ [Suspect]
     Dosage: 300 MG, UNK
     Route: 048

REACTIONS (4)
  - Renal failure [Fatal]
  - Multi-organ failure [Fatal]
  - Diabetes mellitus [Unknown]
  - Hypertension [Unknown]
